FAERS Safety Report 4838019-9 (Version None)
Quarter: 2005Q4

REPORT INFORMATION
  Report Type: 
  Country: None (occurrence: None)
  Receive Date: 20051123
  Receipt Date: 20051123
  Transmission Date: 20060501
  Serious: No
  Sender: FDA-Public Use
  Company Number: None

PATIENT
  Sex: Female

DRUGS (6)
  1. COUMADIN [Suspect]
     Indication: ANTICOAGULANT THERAPY
     Dosage: 7.5 MG PO DAILY
     Route: 048
  2. METRONIDAZOLE [Concomitant]
  3. HYDROMORPHINE [Concomitant]
  4. MORPHINE [Concomitant]
  5. PROCHLORPERAZINE [Concomitant]
  6. APAP TAB [Concomitant]

REACTIONS (1)
  - INTERNATIONAL NORMALISED RATIO INCREASED [None]
